FAERS Safety Report 6259597-1 (Version None)
Quarter: 2009Q3

REPORT INFORMATION
  Report Type: 
  Country: None (occurrence: None)
  Receive Date: 20090708
  Receipt Date: 20070626
  Transmission Date: 20100115
  Serious: Yes (Other)
  Sender: FDA-Public Use
  Company Number: US-ASTRAZENECA-2006UW25305

PATIENT
  Age: 15075 Day
  Sex: Female
  Weight: 148.8 kg

DRUGS (30)
  1. SEROQUEL [Suspect]
     Dosage: 25-600 MG
     Route: 048
     Dates: start: 20000128
  2. ZIPRASIDONE HCL [Concomitant]
  3. RISPERIDONE [Concomitant]
  4. OLANZAPINE [Concomitant]
  5. TOPAMAX [Concomitant]
  6. SINGULAIR [Concomitant]
  7. NEURONTIN [Concomitant]
  8. GLUCOTROL [Concomitant]
  9. CELEXA [Concomitant]
  10. ALDACTONE [Concomitant]
  11. HUMULIN 70/30 [Concomitant]
  12. ACCUPRIL [Concomitant]
  13. ACTOS [Concomitant]
  14. RISPERDAL [Concomitant]
  15. CARBAMAZEPINE [Concomitant]
  16. VIOXX [Concomitant]
  17. THIOTHIXENE [Concomitant]
  18. UNIPHYL [Concomitant]
  19. AMBIEN [Concomitant]
  20. LISINOPRIL [Concomitant]
  21. TRAZODONE HCL [Concomitant]
  22. PREDNISONE [Concomitant]
  23. WELLBUTRIN [Concomitant]
  24. FUROSEMIDE [Concomitant]
  25. GEODON [Concomitant]
  26. CYMBALTA [Concomitant]
  27. TRAMADOL HCL [Concomitant]
  28. ZOCOR [Concomitant]
  29. PAROXETINE HCL [Concomitant]
  30. LUNESTA [Concomitant]

REACTIONS (6)
  - BLOOD GLUCOSE DECREASED [None]
  - DIABETES MELLITUS [None]
  - DIABETIC NEUROPATHY [None]
  - INJURY [None]
  - SCIATIC NERVE NEUROPATHY [None]
  - TYPE 2 DIABETES MELLITUS [None]
